FAERS Safety Report 8847119 (Version 1)
Quarter: 2012Q4

REPORT INFORMATION
  Report Type: Spontaneous
  Country: US (occurrence: None)
  Receive Date: 20121017
  Receipt Date: 20121017
  Transmission Date: 20130627
  Serious: No
  Sender: FDA-Public Use
  Company Number: None

PATIENT
  Age: 67 Year
  Sex: Male
  Weight: 46.9 kg

DRUGS (2)
  1. MORPHINE [Suspect]
     Indication: PAIN
     Route: 042
     Dates: start: 20120918, end: 20120926
  2. ACETAMINOPHEN/HYDROCODONE [Suspect]
     Indication: PAIN
     Dates: start: 20120916, end: 20120926

REACTIONS (4)
  - Confusional state [None]
  - Sedation [None]
  - Respiratory depression [None]
  - Hypotension [None]
